FAERS Safety Report 7505512-X (Version None)
Quarter: 2011Q2

REPORT INFORMATION
  Report Type: 
  Country: None (occurrence: None)
  Receive Date: 20110526
  Receipt Date: 20110519
  Transmission Date: 20111010
  Serious: Yes (Hospitalization)
  Sender: FDA-Public Use
  Company Number: FR-B.I. PHARMACEUTICALS,INC./RIDGEFIELD-2011-FF-00508FF

PATIENT
  Sex: Female

DRUGS (11)
  1. LYRICA [Suspect]
     Route: 048
  2. TRANSIPEG [Suspect]
     Route: 048
  3. TERCIAN [Suspect]
     Dosage: 1000 MG
     Route: 048
     Dates: start: 20110405
  4. SPASFON [Suspect]
     Route: 048
  5. LEXOMIL [Suspect]
     Route: 048
  6. VENTOLIN [Suspect]
     Route: 055
  7. IPRATROPIUM BROMIDE [Suspect]
     Indication: CHRONIC OBSTRUCTIVE PULMONARY DISEASE
     Dosage: 100?G/40?G
     Route: 055
  8. LAMALINE [Suspect]
     Route: 048
  9. SPIRIVA [Suspect]
     Indication: CHRONIC OBSTRUCTIVE PULMONARY DISEASE
     Route: 055
  10. VIRAFERONPEG [Suspect]
     Indication: HEPATITIS C
     Route: 058
  11. EFFEXOR [Suspect]
     Route: 048

REACTIONS (1)
  - SUICIDE ATTEMPT [None]
